FAERS Safety Report 9105418 (Version 1)
Quarter: 2013Q1

REPORT INFORMATION
  Report Type: Spontaneous
  Country: US (occurrence: US)
  Receive Date: 20130220
  Receipt Date: 20130220
  Transmission Date: 20140127
  Serious: Yes (Other)
  Sender: FDA-Public Use
  Company Number: US-PFIZER INC-2013063292

PATIENT
  Age: 60 Year
  Sex: Female
  Weight: 65.76 kg

DRUGS (3)
  1. CHANTIX [Suspect]
     Indication: SMOKING CESSATION THERAPY
     Dosage: 0.5 MG, 1X/DAY
     Route: 048
     Dates: start: 20120811
  2. CHANTIX [Suspect]
     Dosage: 1 MG, UNK
     Route: 048
     Dates: end: 201208
  3. CHANTIX [Suspect]
     Dosage: 0.5 MG, UNK
     Dates: start: 20130207

REACTIONS (4)
  - Malaise [Unknown]
  - Blood cholesterol increased [Unknown]
  - Vomiting [Unknown]
  - Drug prescribing error [Unknown]
